FAERS Safety Report 10242467 (Version 1)
Quarter: 2014Q2

REPORT INFORMATION
  Report Type: Report from Study
  Country: JP (occurrence: JP)
  Receive Date: 20140617
  Receipt Date: 20140617
  Transmission Date: 20141212
  Serious: Yes (Other)
  Sender: FDA-Public Use
  Company Number: JP-B.I. PHARMACEUTICALS,INC./RIDGEFIELD-2014-BI-26765NB

PATIENT
  Age: 67 Year
  Sex: Male
  Weight: 52.3 kg

DRUGS (8)
  1. PRAZAXA [Suspect]
     Indication: CEREBROVASCULAR ACCIDENT PROPHYLAXIS
     Dosage: 220 MG
     Route: 048
     Dates: start: 20120911, end: 20130514
  2. BAYASPIRIN [Concomitant]
     Dosage: 100 MG
     Route: 048
     Dates: start: 20090407
  3. LIPITOR [Concomitant]
     Dosage: 10 MG
     Route: 048
  4. RENIVACE [Concomitant]
     Dosage: 5 MG
     Route: 048
  5. PARIET [Concomitant]
     Indication: PROPHYLAXIS
     Dosage: 10 MG
     Route: 048
  6. ARTIST [Concomitant]
     Dosage: 5 MG
     Route: 048
     Dates: end: 20121126
  7. ARTIST [Concomitant]
     Dosage: 10 MG
     Route: 048
     Dates: start: 20121127
  8. SUNRYTHM [Concomitant]
     Indication: CARDIOVERSION
     Route: 048

REACTIONS (1)
  - Angina unstable [Recovered/Resolved]
